FAERS Safety Report 17727259 (Version 1)
Quarter: 2020Q2

REPORT INFORMATION
  Report Type: Report from Study
  Country: DE (occurrence: DE)
  Receive Date: 20200430
  Receipt Date: 20200430
  Transmission Date: 20200714
  Serious: Yes (Other)
  Sender: FDA-Public Use
  Company Number: DE-ROCHE-2584194

PATIENT

DRUGS (1)
  1. OCRELIZUMAB. [Suspect]
     Active Substance: OCRELIZUMAB
     Indication: MULTIPLE SCLEROSIS
     Route: 042

REACTIONS (17)
  - Vision blurred [Unknown]
  - Urinary tract infection [Unknown]
  - Gastrointestinal infection [Unknown]
  - Abdominal pain [Unknown]
  - Oral herpes [Unknown]
  - Liver disorder [Unknown]
  - Syncope [Unknown]
  - Pruritus [Unknown]
  - Pharyngeal oedema [Unknown]
  - Upper respiratory tract infection [Unknown]
  - Fatigue [Unknown]
  - Nausea [Unknown]
  - Headache [Unknown]
  - Tachycardia [Unknown]
  - Erythema [Unknown]
  - Vertigo [Unknown]
  - Dyspnoea [Unknown]
